FAERS Safety Report 18631620 (Version 2)
Quarter: 2021Q4

REPORT INFORMATION
  Report Type: Spontaneous
  Country: US (occurrence: US)
  Receive Date: 20201217
  Receipt Date: 20211216
  Transmission Date: 20220303
  Serious: No
  Sender: FDA-Public Use
  Company Number: US-ENDO PHARMACEUTICALS INC-2020-006300

PATIENT
  Sex: Male

DRUGS (2)
  1. XIAFLEX [Suspect]
     Active Substance: COLLAGENASE CLOSTRIDIUM HISTOLYTICUM
     Indication: Peyronie^s disease
     Dosage: UNK UNKNOWN, CYCLE 1, 2 INJECTIONS
     Route: 065
     Dates: start: 20200715
  2. XIAFLEX [Suspect]
     Active Substance: COLLAGENASE CLOSTRIDIUM HISTOLYTICUM
     Dosage: UNK UNKNOWN, CYCLE 2
     Route: 065
     Dates: start: 202010

REACTIONS (6)
  - Throat irritation [Unknown]
  - Pyrexia [Unknown]
  - Unevaluable event [Unknown]
  - Injection site nodule [Not Recovered/Not Resolved]
  - Injection site bruising [Recovered/Resolved]
  - Penile contusion [Recovered/Resolved]

NARRATIVE: CASE EVENT DATE: 20200101
